FAERS Safety Report 11066354 (Version 1)
Quarter: 2015Q2

REPORT INFORMATION
  Report Type: Spontaneous
  Country: FI (occurrence: None)
  Receive Date: 20150423
  Receipt Date: 20150423
  Transmission Date: 20150821
  Serious: Yes (Other)
  Sender: FDA-Public Use
  Company Number: 2015EDG000115

PATIENT
  Age: 20 Year
  Sex: Female

DRUGS (4)
  1. SERONIL [Suspect]
     Active Substance: FLUOXETINE HYDROCHLORIDE
     Indication: PSYCHOTIC DISORDER
     Route: 048
     Dates: start: 20131122
  2. THYROXIN [Concomitant]
     Active Substance: LEVOTHYROXINE
  3. XEPLION [Suspect]
     Active Substance: PALIPERIDONE PALMITATE
     Indication: PSYCHOTIC DISORDER
     Dates: start: 20140228, end: 20140714
  4. RISPERDAL [Suspect]
     Active Substance: RISPERIDONE
     Indication: PSYCHOTIC DISORDER
     Dosage: 1X/DAY
     Route: 048
     Dates: start: 20140109

REACTIONS (5)
  - Blood prolactin increased [None]
  - Schizophrenia [None]
  - Weight increased [None]
  - Drug interaction [None]
  - Pituitary tumour benign [None]

NARRATIVE: CASE EVENT DATE: 20140627
